FAERS Safety Report 13877721 (Version 1)
Quarter: 2017Q3

REPORT INFORMATION
  Report Type: Spontaneous
  Country: DE (occurrence: DE)
  Receive Date: 20170817
  Receipt Date: 20170817
  Transmission Date: 20171127
  Serious: Yes (Other)
  Sender: FDA-Public Use
  Company Number: PHHY2017DE119091

PATIENT
  Sex: Female

DRUGS (2)
  1. COSENTYX [Suspect]
     Active Substance: SECUKINUMAB
     Indication: PSORIASIS
     Dosage: 150 MG, PER ADMINISTRATION EVERY FOUR OR FIVE WEEKS
     Route: 065
  2. COSENTYX [Suspect]
     Active Substance: SECUKINUMAB
     Dosage: 150 MG, PER ADMINISTRATION EVERY FOUR OR FIVE WEEKS
     Route: 065

REACTIONS (5)
  - Leukopenia [Unknown]
  - Infection [Unknown]
  - White blood cells urine positive [Unknown]
  - Gastrointestinal disorder [Unknown]
  - Body temperature increased [Unknown]

NARRATIVE: CASE EVENT DATE: 2017
